FAERS Safety Report 9937385 (Version 1)
Quarter: 2014Q1

REPORT INFORMATION
  Report Type: Report from Study
  Country: US (occurrence: US)
  Receive Date: 20140303
  Receipt Date: 20140303
  Transmission Date: 20141002
  Serious: Yes (Other)
  Sender: FDA-Public Use
  Company Number: US-ROCHE-1353744

PATIENT
  Age: 50 Year
  Sex: Male
  Weight: 71 kg

DRUGS (32)
  1. AVASTIN [Suspect]
     Indication: RECTAL CANCER
     Dosage: THE PATIENT RECEIVED A DOSE ON 28/NOV/2012, 09/JAN/2013, 23/JAN/2013, 13/MAR/2013, 27/MAR/2013 AND 1
     Route: 042
     Dates: start: 20121114
  2. AVASTIN [Suspect]
     Indication: METASTASES TO LIVER
  3. ACTIVASE [Suspect]
     Indication: RECTAL CANCER
     Route: 042
     Dates: start: 20121114
  4. NEULASTA [Concomitant]
     Route: 065
     Dates: start: 20120905, end: 20121128
  5. NORVASC [Concomitant]
     Route: 048
  6. LEUCOVORIN [Concomitant]
     Route: 051
  7. LEUCOVORIN [Concomitant]
     Route: 042
  8. PALONOSETRON [Concomitant]
     Route: 051
     Dates: start: 20120905, end: 20121128
  9. PALONOSETRON [Concomitant]
     Route: 065
     Dates: start: 20121226, end: 20130626
  10. PALONOSETRON [Concomitant]
     Route: 042
  11. IBUPROFEN [Concomitant]
     Route: 048
  12. METRONIDAZOLE [Concomitant]
     Route: 048
  13. MIRALAX [Concomitant]
     Route: 048
  14. EMLA [Concomitant]
     Route: 061
  15. HYDROCODONE/ACETAMINOPHEN [Concomitant]
     Indication: PAIN
     Dosage: 10-325 MG
     Route: 048
  16. POTASSIUM CHLORIDE [Concomitant]
     Dosage: 20 MEQ
     Route: 048
  17. POTASSIUM CHLORIDE [Concomitant]
     Route: 065
     Dates: start: 20130220, end: 20130220
  18. PROCHLORPERAZINE MALEATE [Concomitant]
     Indication: NAUSEA
     Route: 048
  19. PROTONIX (PANTOPRAZOLE SODIUM) [Concomitant]
     Route: 047
  20. DEXAMETHASONE [Concomitant]
     Route: 051
     Dates: start: 20120905, end: 20121128
  21. DEXAMETHASONE [Concomitant]
     Route: 065
     Dates: start: 20121226, end: 20130626
  22. DEXAMETHASONE [Concomitant]
     Route: 042
  23. FLUOROURACIL [Concomitant]
     Route: 051
     Dates: start: 20121128
  24. FLUOROURACIL [Concomitant]
     Route: 065
     Dates: start: 20130626
  25. FLUOROURACIL [Concomitant]
     Route: 042
  26. FLUOROURACIL [Concomitant]
     Route: 042
  27. OXALIPLATIN [Concomitant]
     Route: 065
     Dates: start: 20120905, end: 20121128
  28. OXALIPLATIN [Concomitant]
     Route: 042
  29. LEUCOVORIN CALCIUM [Concomitant]
     Route: 065
     Dates: start: 20120905, end: 20121128
  30. LEUCOVORIN CALCIUM [Concomitant]
     Route: 065
     Dates: start: 20121226, end: 20130626
  31. IRINOTECAN [Concomitant]
     Route: 065
     Dates: start: 20121226, end: 20130626
  32. SODIUM CHLORIDE [Concomitant]
     Route: 065
     Dates: start: 20130220, end: 20130220

REACTIONS (3)
  - Hypokalaemia [Unknown]
  - Laboratory test abnormal [Unknown]
  - Thrombosis in device [Unknown]
